FAERS Safety Report 4440183-0 (Version None)
Quarter: 2004Q3

REPORT INFORMATION
  Report Type: 
  Country: None (occurrence: None)
  Receive Date: 20040901
  Receipt Date: 20040901
  Transmission Date: 20050211
  Serious: No
  Sender: FDA-Public Use
  Company Number: None

PATIENT
  Age: 79 Year
  Sex: Male

DRUGS (1)
  1. TRAZODONE 50 MG (WATSON) [Suspect]
     Indication: INSOMNIA
     Dosage: 25 MG ET HS
     Dates: start: 20040720, end: 20040721

REACTIONS (1)
  - CHEST PAIN [None]
